FAERS Safety Report 9190901 (Version 1)
Quarter: 2013Q1

REPORT INFORMATION
  Report Type: Spontaneous
  Country: CH (occurrence: CH)
  Receive Date: 20130326
  Receipt Date: 20130326
  Transmission Date: 20140127
  Serious: Yes (Hospitalization, Other)
  Sender: FDA-Public Use
  Company Number: CH-009507513-1303CHE011989

PATIENT
  Age: 41 Year
  Sex: Male

DRUGS (4)
  1. REMERON [Suspect]
     Dosage: 45 MG; 28 UNITS, ONCE
     Route: 048
     Dates: start: 20130221, end: 20130221
  2. CLORAZEPATE [Suspect]
     Dosage: 20 MG; 10 UNITS, ONCE
     Route: 048
     Dates: start: 20130221, end: 20130221
  3. QUETIAPINE FUMARATE [Suspect]
     Dosage: 25 MG; 15 UNITS, ONCE
     Route: 048
     Dates: start: 20130221, end: 20130221
  4. ALCOHOL [Suspect]
     Dosage: UNK, ONCE
     Route: 048
     Dates: start: 20130221, end: 20130221

REACTIONS (9)
  - Suicide attempt [Recovered/Resolved with Sequelae]
  - Cholinergic syndrome [Recovered/Resolved with Sequelae]
  - Somnolence [Recovered/Resolved with Sequelae]
  - Agitation [Recovered/Resolved with Sequelae]
  - Confusional state [Recovered/Resolved with Sequelae]
  - Tachycardia [Recovered/Resolved with Sequelae]
  - Alanine aminotransferase increased [Unknown]
  - Aspartate aminotransferase increased [Unknown]
  - Gamma-glutamyltransferase increased [Unknown]
